FAERS Safety Report 7883510-4 (Version None)
Quarter: 2011Q4

REPORT INFORMATION
  Report Type: 
  Country: None (occurrence: None)
  Receive Date: 20111102
  Receipt Date: 20111025
  Transmission Date: 20120403
  Serious: Yes (Other)
  Sender: FDA-Public Use
  Company Number: AU-ASTELLAS-2011US006651

PATIENT
  Sex: Female
  Weight: 61 kg

DRUGS (3)
  1. PEMETREXED [Suspect]
     Indication: NON-SMALL CELL LUNG CANCER
     Dosage: UNK
     Route: 065
  2. ERLOTINIB HYDROCHLORIDE [Suspect]
     Indication: NON-SMALL CELL LUNG CANCER
     Dosage: 100 MG, UID/QD
     Route: 048
     Dates: start: 20100714, end: 20110824
  3. PERTUZUMAB [Suspect]
     Indication: NON-SMALL CELL LUNG CANCER
     Dosage: 420 DF, Q3W
     Route: 042
     Dates: start: 20100714, end: 20110825

REACTIONS (3)
  - INCORRECT DOSE ADMINISTERED [None]
  - LEFT VENTRICULAR DYSFUNCTION [None]
  - ADVERSE EVENT [None]
